FAERS Safety Report 7810903 (Version 3)
Quarter: 2013Q3

REPORT INFORMATION
  Report Type: Spontaneous
  Country: CA (occurrence: CA)
  Receive Date: 20110214
  Receipt Date: 20130823
  Transmission Date: 20140515
  Serious: Yes (Other)
  Sender: FDA-Public Use
  Company Number: CA-NAPPMUNDI-CAN-2011-0001730

PATIENT
  Sex: Female

DRUGS (3)
  1. OXYCONTIN TABLETS [Suspect]
     Indication: PAIN
     Dosage: UNK
     Route: 048
     Dates: start: 2007
  2. MORPHINE SULFATE [Suspect]
     Indication: PAIN
     Route: 048
  3. METHADONE /00068902/ [Suspect]
     Indication: PAIN
     Route: 048

REACTIONS (5)
  - Drug dependence [Recovered/Resolved]
  - Drug withdrawal syndrome [Unknown]
  - Dyspnoea [Unknown]
  - Insomnia [Unknown]
  - Euphoric mood [Unknown]
